FAERS Safety Report 26199647 (Version 1)
Quarter: 2025Q4

REPORT INFORMATION
  Report Type: Spontaneous
  Country: US (occurrence: US)
  Receive Date: 20251225
  Receipt Date: 20251225
  Transmission Date: 20260118
  Serious: Yes (Hospitalization)
  Sender: SAMSUNG BIOEPIS
  Company Number: US-SAMSUNG BIOEPIS-SB-2025-42299

PATIENT
  Age: 55 Year
  Sex: Male

DRUGS (2)
  1. INFLIXIMAB [Suspect]
     Active Substance: INFLIXIMAB
     Indication: Crohn^s disease
  2. UPADACITINIB [Suspect]
     Active Substance: UPADACITINIB
     Indication: Crohn^s disease

REACTIONS (5)
  - Terminal ileitis [Recovering/Resolving]
  - Bacteraemia [Recovered/Resolved]
  - Mesenteric vein thrombosis [Recovering/Resolving]
  - Hypercoagulation [Recovering/Resolving]
  - Portal vein thrombosis [Recovering/Resolving]
